FAERS Safety Report 8426663-1 (Version None)
Quarter: 2012Q2

REPORT INFORMATION
  Report Type: 
  Country: None (occurrence: None)
  Receive Date: 20120604
  Receipt Date: 20120523
  Transmission Date: 20120825
  Serious: Yes (Hospitalization)
  Sender: FDA-Public Use
  Company Number: 2012SP027981

PATIENT
  Age: 39 Year
  Sex: Female

DRUGS (4)
  1. RIBAVIRIN [Suspect]
     Indication: BILIARY CIRRHOSIS
     Dates: start: 20120316, end: 20120519
  2. ESCITALOPRAM [Concomitant]
  3. VICTRELIS [Suspect]
     Indication: BILIARY CIRRHOSIS
     Dosage: 800 MG;Q8H;
     Dates: start: 20120417, end: 20120519
  4. PEGASYS [Suspect]
     Indication: BILIARY CIRRHOSIS
     Dates: start: 20120316, end: 20120519

REACTIONS (5)
  - ANAEMIA [None]
  - HYPONATRAEMIA [None]
  - OEDEMA [None]
  - RENAL FAILURE [None]
  - ASTHENIA [None]
